FAERS Safety Report 8779286 (Version 1)
Quarter: 2012Q4

REPORT INFORMATION
  Report Type: 
  Country: US (occurrence: US)
  Receive Date: 20120911
  Receipt Date: 20120911
  Transmission Date: 20130627
  Serious: Yes (Death, Other)
  Sender: FDA-Public Use
  Company Number: US-ELI_LILLY_AND_COMPANY-US201209002031

PATIENT
  Sex: Female
  Weight: 60 kg

DRUGS (1)
  1. EFFIENT [Suspect]
     Indication: STENT PLACEMENT

REACTIONS (3)
  - Death [Fatal]
  - Device occlusion [Unknown]
  - Gastrointestinal haemorrhage [Unknown]
